FAERS Safety Report 7548214-6 (Version None)
Quarter: 2011Q2

REPORT INFORMATION
  Report Type: 
  Country: None (occurrence: None)
  Receive Date: 20110524
  Receipt Date: 20110301
  Transmission Date: 20111010
  Serious: No
  Sender: FDA-Public Use
  Company Number: 026332

PATIENT
  Sex: Female
  Weight: 81.7 kg

DRUGS (6)
  1. CIMZIA [Suspect]
  2. PREDNISOLONE ACETATE [Concomitant]
  3. VICODIN [Concomitant]
  4. M.V.I. [Concomitant]
  5. CIMZIA [Suspect]
     Indication: CROHN'S DISEASE
     Dosage: SUBCUTANEOUS, 100 MG 1X/2 WEEKS SUBCUTANEOUS, SUBCUTANEOUS
     Route: 058
     Dates: start: 20081226
  6. CIMZIA [Suspect]
     Indication: CROHN'S DISEASE
     Dosage: SUBCUTANEOUS, 100 MG 1X/2 WEEKS SUBCUTANEOUS, SUBCUTANEOUS
     Route: 058
     Dates: start: 20101101

REACTIONS (5)
  - INSOMNIA [None]
  - CROHN'S DISEASE [None]
  - ANAEMIA [None]
  - UVEITIS [None]
  - PLANTAR FASCIITIS [None]
